FAERS Safety Report 21567446 (Version 2)
Quarter: 2023Q1

REPORT INFORMATION
  Report Type: Spontaneous
  Country: US (occurrence: US)
  Receive Date: 20221108
  Receipt Date: 20230110
  Transmission Date: 20230418
  Serious: No
  Sender: FDA-Public Use
  Company Number: US-Covis Pharma GmbH-2022COV22140

PATIENT
  Age: 67 Year
  Sex: Female

DRUGS (1)
  1. TUDORZA PRESSAIR [Suspect]
     Active Substance: ACLIDINIUM BROMIDE
     Indication: Asthma
     Dosage: 400 MCG, ORAL INHALATION, 1 PUFF 2X DAILY

REACTIONS (5)
  - COVID-19 [Unknown]
  - Asthma [Unknown]
  - Dyspnoea [Unknown]
  - Product dose omission issue [Unknown]
  - Off label use [Unknown]

NARRATIVE: CASE EVENT DATE: 20221023
